FAERS Safety Report 25368660 (Version 1)
Quarter: 2025Q2

REPORT INFORMATION
  Report Type: Spontaneous
  Country: US (occurrence: US)
  Receive Date: 20250528
  Receipt Date: 20250528
  Transmission Date: 20250717
  Serious: No
  Sender: AMGEN
  Company Number: US-AMGEN-USASP2025102127

PATIENT
  Age: 58 Year
  Sex: Female

DRUGS (9)
  1. OTEZLA [Suspect]
     Active Substance: APREMILAST
     Indication: Psoriasis
     Dosage: 30 MILLIGRAM, BID
     Route: 048
     Dates: start: 20250208
  2. OTEZLA [Suspect]
     Active Substance: APREMILAST
     Indication: Eczema
  3. ACETAMINOPHEN [Concomitant]
     Active Substance: ACETAMINOPHEN
  4. BIOTIN [Concomitant]
     Active Substance: BIOTIN
  5. MINERALS\VITAMINS [Concomitant]
     Active Substance: MINERALS\VITAMINS
  6. Probiotic 4 [Concomitant]
  7. VITAMIN B1 [Concomitant]
     Active Substance: THIAMINE HYDROCHLORIDE
  8. VITAMIN D [Concomitant]
     Active Substance: VITAMIN D NOS
  9. TRIAMCINOLONE [Concomitant]
     Active Substance: TRIAMCINOLONE

REACTIONS (3)
  - Headache [Not Recovered/Not Resolved]
  - Nausea [Not Recovered/Not Resolved]
  - Decreased appetite [Not Recovered/Not Resolved]

NARRATIVE: CASE EVENT DATE: 20250208
